FAERS Safety Report 8867149 (Version 1)
Quarter: 2012Q4

REPORT INFORMATION
  Report Type: 
  Country: US (occurrence: US)
  Receive Date: 20121025
  Receipt Date: 20121025
  Transmission Date: 20130627
  Serious: No
  Sender: FDA-Public Use
  Company Number: US-AMGEN-USASP2012015357

PATIENT
  Age: 49 Year
  Sex: Female

DRUGS (14)
  1. ENBREL [Suspect]
     Indication: PRODUCT USED FOR UNKNOWN INDICATION
     Dosage: 25 mg, 2 times/wk
  2. METHOTREXATE [Concomitant]
     Dosage: 2.5 mg, UNK
  3. FOLIC ACID [Concomitant]
     Dosage: 1 mg, UNK
  4. HYDROXYCHLOROQUINE [Concomitant]
     Dosage: 200 mg, UNK
  5. LEVOTHYROXIN [Concomitant]
     Dosage: 25 mug, UNK
  6. NEXIUM                             /01479302/ [Concomitant]
     Dosage: 40 mg, UNK
  7. ADVAIR [Concomitant]
  8. ALBUTEROL                          /00139501/ [Concomitant]
     Dosage: 90 mug, UNK
  9. CENTRUM                            /00554501/ [Concomitant]
  10. FISH OIL [Concomitant]
  11. CITRACAL + D                       /01438101/ [Concomitant]
  12. SINGULAIR [Concomitant]
     Dosage: 10 mg, UNK
  13. LEXAPRO [Concomitant]
     Dosage: 5 mg, UNK
  14. NASONEX [Concomitant]
     Dosage: 50 mug, UNK

REACTIONS (1)
  - Sinusitis [Unknown]
